FAERS Safety Report 10199148 (Version 1)
Quarter: 2014Q2

REPORT INFORMATION
  Report Type: Spontaneous
  Country: DE (occurrence: DE)
  Receive Date: 20140527
  Receipt Date: 20140527
  Transmission Date: 20141212
  Serious: Yes (Death, Congenital Anomaly)
  Sender: FDA-Public Use
  Company Number: DE-TEVA-483009GER

PATIENT
  Sex: Male

DRUGS (3)
  1. CITALOPRAM [Suspect]
     Route: 064
  2. MIRTAZAPIN [Suspect]
     Route: 064
  3. FOLSAEURE [Concomitant]
     Route: 064

REACTIONS (3)
  - Abortion spontaneous [Fatal]
  - Limb reduction defect [Not Recovered/Not Resolved]
  - Asplenia [Not Recovered/Not Resolved]
